FAERS Safety Report 9478970 (Version 4)
Quarter: 2013Q4

REPORT INFORMATION
  Report Type: Report from Study
  Country: CZ (occurrence: CZ)
  Receive Date: 20130827
  Receipt Date: 20131227
  Transmission Date: 20140711
  Serious: Yes (Hospitalization)
  Sender: FDA-Public Use
  Company Number: CZ-ROCHE-1260749

PATIENT
  Age: 49 Year
  Sex: Female

DRUGS (1)
  1. RITUXIMAB [Suspect]
     Indication: LYMPHOMA
     Route: 065

REACTIONS (3)
  - Encephalopathy [Unknown]
  - Acute hepatic failure [Unknown]
  - Hepatitis B [Unknown]
